FAERS Safety Report 5718489-4 (Version None)
Quarter: 2008Q2

REPORT INFORMATION
  Report Type: 
  Country: None (occurrence: None)
  Receive Date: 20080425
  Receipt Date: 20080416
  Transmission Date: 20081010
  Serious: Yes (Death, Hospitalization, Other)
  Sender: FDA-Public Use
  Company Number: FR-ABBOTT-08P-056-0447727-00

PATIENT
  Sex: Male

DRUGS (4)
  1. DEPAKOTE [Suspect]
     Indication: DEPRESSION
     Dosage: OVERDOSE
     Route: 048
     Dates: start: 20080101, end: 20080114
  2. DEPAKOTE [Suspect]
     Route: 048
     Dates: end: 20080101
  3. ESOMEPRAZOLE [Suspect]
     Indication: GASTRIC ULCER
     Route: 048
  4. HALOPERIDOL [Concomitant]
     Indication: DEPRESSION
     Route: 058

REACTIONS (12)
  - ACUTE HEPATIC FAILURE [None]
  - COMA [None]
  - CYTOLYTIC HEPATITIS [None]
  - DRUG LEVEL INCREASED [None]
  - HAEMODIALYSIS [None]
  - HAEMODYNAMIC INSTABILITY [None]
  - HYPERAMMONAEMIA [None]
  - INTENTIONAL OVERDOSE [None]
  - LACTIC ACIDOSIS [None]
  - LOSS OF CONSCIOUSNESS [None]
  - RENAL FAILURE [None]
  - TRISMUS [None]
